FAERS Safety Report 6443318-3 (Version None)
Quarter: 2009Q4

REPORT INFORMATION
  Report Type: 
  Country: None (occurrence: None)
  Receive Date: 20091117
  Receipt Date: 20091022
  Transmission Date: 20100525
  Serious: No
  Sender: FDA-Public Use
  Company Number: US-JNJFOC-20091007359

PATIENT
  Age: 50 Year
  Sex: Female

DRUGS (4)
  1. INVEGA [Suspect]
     Route: 048
  2. INVEGA [Suspect]
     Route: 048
  3. INVEGA [Suspect]
     Indication: SCHIZOPHRENIA
     Route: 048
  4. VITAMINS NOS [Concomitant]

REACTIONS (1)
  - EYE ROLLING [None]
